FAERS Safety Report 7879997-3 (Version None)
Quarter: 2011Q4

REPORT INFORMATION
  Report Type: 
  Country: None (occurrence: None)
  Receive Date: 20111101
  Receipt Date: 20111018
  Transmission Date: 20120403
  Serious: Yes (Hospitalization)
  Sender: FDA-Public Use
  Company Number: AU-ROCHE-780172

PATIENT
  Sex: Female

DRUGS (7)
  1. PEGINTERFERON ALFA-2A [Suspect]
     Indication: HEPATITIS C
     Route: 058
     Dates: start: 20110309, end: 20110430
  2. ACETAMINOPHEN [Concomitant]
  3. COPEGUS [Suspect]
     Indication: HEPATITIS C
     Route: 048
     Dates: start: 20110309, end: 20110330
  4. MELATONIN [Concomitant]
  5. PREGNENOLONE [Concomitant]
  6. MAGNESIUM [Concomitant]
  7. CALCIUM [Concomitant]

REACTIONS (1)
  - GASTROINTESTINAL INFLAMMATION [None]
